FAERS Safety Report 5532684-9 (Version None)
Quarter: 2007Q4

REPORT INFORMATION
  Report Type: 
  Country: None (occurrence: None)
  Receive Date: 20071120
  Receipt Date: 20070727
  Transmission Date: 20080405
  Serious: No
  Sender: FDA-Public Use
  Company Number: WAES 0707USA04993

PATIENT
  Age: 66 Year
  Sex: Male

DRUGS (2)
  1. JANUVIA [Suspect]
     Indication: BLOOD GLUCOSE ABNORMAL
     Dosage: 100 MG/DAILY/PO
     Route: 048
     Dates: start: 20070723, end: 20070727
  2. ALTACE [Concomitant]

REACTIONS (2)
  - MYDRIASIS [None]
  - VISION BLURRED [None]
